FAERS Safety Report 9902962 (Version 1)
Quarter: 2014Q1

REPORT INFORMATION
  Report Type: Spontaneous
  Country: TR (occurrence: TR)
  Receive Date: 20140217
  Receipt Date: 20140217
  Transmission Date: 20141002
  Serious: Yes (Other)
  Sender: FDA-Public Use
  Company Number: PHHY2014TR018646

PATIENT
  Sex: 0

DRUGS (2)
  1. METOPROLOL [Suspect]
     Dosage: UNK
     Route: 064
  2. FUROSEMIDE [Suspect]
     Dosage: UNK
     Route: 064

REACTIONS (2)
  - Premature baby [Unknown]
  - Foetal exposure during pregnancy [Unknown]
